FAERS Safety Report 7027665-2 (Version None)
Quarter: 2010Q4

REPORT INFORMATION
  Report Type: 
  Country: None (occurrence: None)
  Receive Date: 20101004
  Receipt Date: 20100928
  Transmission Date: 20110411
  Serious: Yes (Other)
  Sender: FDA-Public Use
  Company Number: PT-AMGEN-QUU442026

PATIENT
  Sex: Female

DRUGS (3)
  1. ENBREL [Suspect]
     Indication: RHEUMATOID ARTHRITIS
     Route: 058
     Dates: start: 20091130, end: 20100913
  2. HYDROXYCHLOROQUINE [Concomitant]
     Route: 048
     Dates: start: 20080101
  3. LEDERTREXATO [Concomitant]
     Indication: RHEUMATOID ARTHRITIS
     Route: 048
     Dates: start: 20020101

REACTIONS (1)
  - BREAST CANCER [None]
